FAERS Safety Report 22076494 (Version 1)
Quarter: 2023Q1

REPORT INFORMATION
  Report Type: Spontaneous
  Country: GB (occurrence: GB)
  Receive Date: 20230309
  Receipt Date: 20230309
  Transmission Date: 20230417
  Serious: Yes (Death, Other)
  Sender: FDA-Public Use
  Company Number: GB-AMGEN-GBRSP2023037226

PATIENT

DRUGS (2)
  1. ADALIMUMAB [Suspect]
     Active Substance: ADALIMUMAB
     Indication: Colitis ulcerative
     Dosage: UNK
     Route: 065
  2. ADALIMUMAB [Suspect]
     Active Substance: ADALIMUMAB
     Indication: Crohn^s disease

REACTIONS (14)
  - Hepatitis viral [Fatal]
  - Neoplasm malignant [Unknown]
  - Clostridium difficile infection [Unknown]
  - Thrombocytopenia [Unknown]
  - Tuberculosis [Unknown]
  - Skin cancer [Unknown]
  - Neutropenia [Unknown]
  - Autoimmune disorder [Unknown]
  - Immune-mediated adverse reaction [Unknown]
  - Skin disorder [Unknown]
  - Nervous system disorder [Unknown]
  - Renal disorder [Unknown]
  - Cardiovascular disorder [Unknown]
  - Infection [Unknown]
